FAERS Safety Report 18704809 (Version 1)
Quarter: 2021Q1

REPORT INFORMATION
  Report Type: Spontaneous
  Country: JP (occurrence: JP)
  Receive Date: 20210105
  Receipt Date: 20210105
  Transmission Date: 20210419
  Serious: No
  Sender: FDA-Public Use
  Company Number: JP-JNJFOC-20201250283

PATIENT
  Age: 9 Decade

DRUGS (3)
  1. DUROTEP [Suspect]
     Active Substance: FENTANYL
  2. DUROTEP [Suspect]
     Active Substance: FENTANYL
     Indication: PRODUCT USED FOR UNKNOWN INDICATION
     Dosage: UNKNOWN
     Route: 062
  3. DUROTEP [Suspect]
     Active Substance: FENTANYL

REACTIONS (3)
  - Inappropriate schedule of product administration [Unknown]
  - Off label use [Unknown]
  - Product adhesion issue [Unknown]
